FAERS Safety Report 9542563 (Version 2)
Quarter: 2013Q3

REPORT INFORMATION
  Report Type: Spontaneous
  Country: US (occurrence: US)
  Receive Date: 20130923
  Receipt Date: 20130930
  Transmission Date: 20140515
  Serious: Yes (Hospitalization)
  Sender: FDA-Public Use
  Company Number: US-BAXTER-2013BAX036779

PATIENT
  Sex: Female

DRUGS (9)
  1. DIANEAL LOW CALCIUM [Suspect]
     Indication: PERITONEAL DIALYSIS
     Route: 033
     Dates: start: 20130730
  2. DIANEAL LOW CALCIUM [Suspect]
     Route: 033
     Dates: start: 20130730
  3. DIANEAL LOW CALCIUM [Suspect]
     Route: 033
  4. DIANEAL LOW CALCIUM [Suspect]
     Route: 033
  5. DIANEAL LOW CALCIUM [Suspect]
     Indication: PERITONEAL DIALYSIS
     Route: 033
     Dates: start: 20130730
  6. DIANEAL LOW CALCIUM [Suspect]
     Route: 033
     Dates: start: 20130730
  7. DIANEAL LOW CALCIUM [Suspect]
     Route: 033
  8. DIANEAL LOW CALCIUM [Suspect]
     Route: 033
  9. LOVENOX [Suspect]
     Indication: THROMBOSIS
     Route: 058

REACTIONS (3)
  - Injection site nodule [Recovering/Resolving]
  - Dyspepsia [Recovering/Resolving]
  - Abdominal wall haematoma [Recovered/Resolved]
